FAERS Safety Report 18086971 (Version 1)
Quarter: 2020Q3

REPORT INFORMATION
  Report Type: Spontaneous
  Country: US (occurrence: US)
  Receive Date: 20200729
  Receipt Date: 20200729
  Transmission Date: 20201103
  Serious: No
  Sender: FDA-Public Use
  Company Number: None

PATIENT
  Age: 59 Year
  Sex: Female
  Weight: 71.1 kg

DRUGS (3)
  1. PACEMAKER [Concomitant]
     Active Substance: DEVICE
  2. INTERSTIM [Concomitant]
  3. BELLADONNA AND OPIUM [Suspect]
     Active Substance: ATROPA BELLADONNA\OPIUM
     Indication: PRODUCT USED FOR UNKNOWN INDICATION
     Dosage: ?          QUANTITY:1 SUPPOSITORY(IES);?
     Route: 054

REACTIONS (1)
  - Flatulence [None]
